FAERS Safety Report 8394055-X (Version None)
Quarter: 2012Q2

REPORT INFORMATION
  Report Type: 
  Country: None (occurrence: None)
  Receive Date: 20120530
  Receipt Date: 20120524
  Transmission Date: 20120825
  Serious: Yes (Other)
  Sender: FDA-Public Use
  Company Number: US-PFIZER INC-2012126441

PATIENT
  Sex: Female
  Weight: 81.6 kg

DRUGS (4)
  1. RELPAX [Suspect]
     Indication: MIGRAINE
     Dosage: 40 MG, AS NEEDED
     Route: 048
  2. CELEBREX [Suspect]
     Indication: MUSCLE SPASMS
     Dosage: 200 MG, 1X/DAY
     Route: 048
     Dates: start: 20120514, end: 20120519
  3. THYROID TAB [Concomitant]
     Indication: HYPOTHYROIDISM
     Dosage: UNK
  4. CELEBREX [Suspect]
     Indication: BACK PAIN

REACTIONS (7)
  - MUSCLE SPASMS [None]
  - HYPERTENSION [None]
  - JOINT SWELLING [None]
  - MIGRAINE [None]
  - BACK PAIN [None]
  - HEADACHE [None]
  - MUSCULOSKELETAL STIFFNESS [None]
